FAERS Safety Report 14116079 (Version 2)
Quarter: 2017Q4

REPORT INFORMATION
  Report Type: Spontaneous
  Country: IT (occurrence: IT)
  Receive Date: 20171023
  Receipt Date: 20171227
  Transmission Date: 20180321
  Serious: Yes (Other)
  Sender: FDA-Public Use
  Company Number: IT-BAYER-2017-196910

PATIENT
  Age: 77 Year
  Sex: Male

DRUGS (5)
  1. AVODART [Concomitant]
     Active Substance: DUTASTERIDE
     Dosage: 0.5 MG, UNK
  2. SILODOSIN [Concomitant]
     Active Substance: SILODOSIN
     Dosage: 8 MG, UNK
  3. EUTIROX [Concomitant]
     Active Substance: LEVOTHYROXINE SODIUM
     Dosage: 1 DF, UNK
  4. NORVASC [Concomitant]
     Active Substance: AMLODIPINE BESYLATE
     Dosage: 1 DF, UNK
  5. SORAFENIB (RAF KINASE INHIBITOR) [Suspect]
     Active Substance: SORAFENIB
     Indication: THYROID CANCER
     Dosage: 200 MG, BID
     Dates: start: 20150107, end: 20150115

REACTIONS (5)
  - Weight decreased [None]
  - Pain in extremity [None]
  - Skin toxicity [None]
  - Rash erythematous [None]
  - Skin ulcer [None]

NARRATIVE: CASE EVENT DATE: 20150116
